FAERS Safety Report 7472387-7 (Version None)
Quarter: 2011Q2

REPORT INFORMATION
  Report Type: 
  Country: None (occurrence: None)
  Receive Date: 20110511
  Receipt Date: 20110506
  Transmission Date: 20111010
  Serious: Yes (Death, Hospitalization, Other)
  Sender: FDA-Public Use
  Company Number: PHHY2011ES32322

PATIENT
  Sex: Female
  Weight: 71 kg

DRUGS (5)
  1. EXJADE [Suspect]
     Indication: MYELODYSPLASTIC SYNDROME
     Dosage: 625 MG, FOR 12 HOURS
     Dates: start: 20081118, end: 20100330
  2. OMEPRAZOLE [Concomitant]
     Dosage: UNK
  3. METFORMIN HCL [Concomitant]
     Dosage: UNK
  4. EXJADE [Suspect]
     Indication: IRON OVERLOAD
  5. VIDAZA [Suspect]
     Indication: MYELODYSPLASTIC SYNDROME
     Dosage: 75 MG/M2, UNK
     Route: 058
     Dates: start: 20100316

REACTIONS (12)
  - HAEMOGLOBIN DECREASED [None]
  - RETICULOCYTE COUNT INCREASED [None]
  - DYSPNOEA [None]
  - DEATH [None]
  - CREPITATIONS [None]
  - CARDIAC FAILURE [None]
  - OEDEMA PERIPHERAL [None]
  - PANCYTOPENIA [None]
  - NAUSEA [None]
  - JAUNDICE [None]
  - BLOOD LACTATE DEHYDROGENASE INCREASED [None]
  - HAEMOLYTIC ANAEMIA [None]
